FAERS Safety Report 6416747-1 (Version None)
Quarter: 2009Q4

REPORT INFORMATION
  Report Type: 
  Country: None (occurrence: None)
  Receive Date: 20091022
  Receipt Date: 20091012
  Transmission Date: 20100525
  Serious: Yes (Death)
  Sender: FDA-Public Use
  Company Number: ADE09061-L

PATIENT

DRUGS (4)
  1. CYCLOSPORINE [Suspect]
     Indication: IMMUNOSUPPRESSION
     Dosage: ORAL; UP TO 7MG/KG/DAY
  2. SIROLIMUS [Concomitant]
  3. PREDNISONE [Concomitant]
  4. ANTIBODIES [Concomitant]

REACTIONS (1)
  - INFECTION [None]
